APPROVED DRUG PRODUCT: METRONIDAZOLE
Active Ingredient: METRONIDAZOLE
Strength: 1%
Dosage Form/Route: GEL;TOPICAL
Application: A218941 | Product #001 | TE Code: AB
Applicant: AUROBINDO PHARMA LTD
Approved: Oct 15, 2024 | RLD: No | RS: No | Type: RX